FAERS Safety Report 9513345 (Version 2)
Quarter: 2013Q3

REPORT INFORMATION
  Report Type: Spontaneous
  Country: GB (occurrence: GB)
  Receive Date: 20130910
  Receipt Date: 20130910
  Transmission Date: 20140515
  Serious: Yes (Other)
  Sender: FDA-Public Use
  Company Number: GB-ABBOTT-12P-167-0986173-00

PATIENT
  Age: 50 Year
  Sex: Female

DRUGS (6)
  1. RITONAVIR [Suspect]
     Indication: HIV INFECTION
  2. TRIAMCINOLONE [Interacting]
     Indication: SERONEGATIVE ARTHRITIS
  3. TRIAMCINOLONE [Interacting]
     Indication: MUSCULOSKELETAL PAIN
  4. TRIAMCINOLONE [Interacting]
     Indication: ARTHRALGIA
  5. KIVEXA [Concomitant]
     Indication: HIV INFECTION
  6. DARUNAVIR [Concomitant]
     Indication: HIV INFECTION

REACTIONS (3)
  - Cushing^s syndrome [Unknown]
  - Adrenal insufficiency [Unknown]
  - Drug interaction [Unknown]
